FAERS Safety Report 16963577 (Version 2)
Quarter: 2019Q4

REPORT INFORMATION
  Report Type: Report from Study
  Country: US (occurrence: US)
  Receive Date: 20191025
  Receipt Date: 20191029
  Transmission Date: 20200122
  Serious: Yes (Hospitalization)
  Sender: FDA-Public Use
  Company Number: US-GILEAD-2019-0417564

PATIENT
  Age: 65 Year
  Sex: Male
  Weight: 140.8 kg

DRUGS (22)
  1. DEXAMETHASONE. [Suspect]
     Active Substance: DEXAMETHASONE
     Indication: NEUROTOXICITY
     Dosage: 10 MG, BID
     Route: 065
     Dates: start: 201907
  2. DEXAMETHASONE. [Suspect]
     Active Substance: DEXAMETHASONE
     Dosage: UNK
     Route: 065
     Dates: end: 20190720
  3. ALBUTEROL [SALBUTAMOL] [Concomitant]
     Active Substance: ALBUTEROL
     Dosage: 3,ML,ONCE
     Route: 055
     Dates: start: 20190620, end: 20190620
  4. AQUAPHOR [WHITE SOFT PARAFFIN] [Concomitant]
     Dosage: 1,OTHER,AS NECESSARY
     Route: 061
     Dates: start: 20190624, end: 20190704
  5. FLUDARABINE [Suspect]
     Active Substance: FLUDARABINE PHOSPHATE
     Indication: BONE MARROW CONDITIONING REGIMEN
     Dosage: 30
     Route: 042
     Dates: start: 20190620, end: 20190622
  6. FENTANYL. [Concomitant]
     Active Substance: FENTANYL
     Dosage: 25,UG,FOUR TIMES DAILY
     Route: 042
     Dates: start: 20190619, end: 20190619
  7. MIDAZOLAM [Concomitant]
     Active Substance: MIDAZOLAM HYDROCHLORIDE
     Dosage: 1,MG,ONCE
     Route: 042
     Dates: start: 20190619, end: 20190619
  8. NORMAL SALINE [Concomitant]
     Active Substance: SODIUM CHLORIDE
     Dosage: 500,ML,CONTINUOUS
     Route: 042
     Dates: start: 20190619, end: 20190619
  9. NORMAL SALINE [Concomitant]
     Active Substance: SODIUM CHLORIDE
     Dosage: 1000,ML,CONTINUOUS
     Route: 042
     Dates: start: 20190620, end: 20190620
  10. INSULIN [Concomitant]
     Active Substance: INSULIN NOS
  11. METFORMIN [Concomitant]
     Active Substance: METFORMIN HYDROCHLORIDE
     Dosage: 1000,MG,TWICE DAILY
     Route: 048
     Dates: start: 20190614
  12. FENTANYL. [Concomitant]
     Active Substance: FENTANYL
     Dosage: 50,UG,ONCE
     Route: 042
     Dates: start: 20190619, end: 20190619
  13. DEXAMETHASONE. [Suspect]
     Active Substance: DEXAMETHASONE
     Dosage: 8 MG, BID
     Route: 065
     Dates: start: 201907
  14. KEPPRA [Concomitant]
     Active Substance: LEVETIRACETAM
     Dosage: 500,MG,TWICE DAILY
     Route: 048
     Dates: start: 20190615, end: 20190714
  15. AXICABTAGENE CILOLEUCEL [Suspect]
     Active Substance: AXICABTAGENE CILOLEUCEL
     Indication: DIFFUSE LARGE B-CELL LYMPHOMA REFRACTORY
     Dosage: 68 ML, ONCE
     Route: 042
     Dates: start: 20190625, end: 20190625
  16. CYCLOPHOSPHAMIDE. [Suspect]
     Active Substance: CYCLOPHOSPHAMIDE
     Indication: BONE MARROW CONDITIONING REGIMEN
     Dosage: 500
     Route: 042
     Dates: start: 20190620, end: 20190622
  17. LEVAQUIN [Concomitant]
     Active Substance: LEVOFLOXACIN
  18. ENTECAVIR. [Concomitant]
     Active Substance: ENTECAVIR
     Dosage: 0.5,MG,DAILY; 5 MG ORAL TABLET
     Route: 048
     Dates: start: 20190620
  19. PENTAMIDINE [Concomitant]
     Active Substance: PENTAMIDINE
     Dosage: 300,MG,ONCE
     Route: 055
     Dates: start: 20190620, end: 20190620
  20. AZOPT [Concomitant]
     Active Substance: BRINZOLAMIDE
     Dosage: 1,OTHER,TWICE DAILY; 1% OPHALMIC SUSPENSION
     Route: 031
     Dates: start: 20190614
  21. MIDAZOLAM [Concomitant]
     Active Substance: MIDAZOLAM HYDROCHLORIDE
     Dosage: 0.5,MG,FOUR TIMES DAILY
     Route: 042
     Dates: start: 20190619, end: 20190619
  22. PALONOSETRON. [Concomitant]
     Active Substance: PALONOSETRON HYDROCHLORIDE
     Dosage: 250,UG,ONCE
     Route: 042
     Dates: start: 20190620, end: 20190620

REACTIONS (6)
  - Confusional state [Recovered/Resolved]
  - Cytokine release syndrome [Recovered/Resolved]
  - Aphasia [Recovered/Resolved]
  - Tremor [Recovered/Resolved]
  - Agitation [Recovered/Resolved]
  - Cognitive disorder [Recovered/Resolved]

NARRATIVE: CASE EVENT DATE: 20190701
